FAERS Safety Report 23630711 (Version 6)
Quarter: 2024Q2

REPORT INFORMATION
  Report Type: Report from Study
  Country: US (occurrence: US)
  Receive Date: 20240314
  Receipt Date: 20240628
  Transmission Date: 20240716
  Serious: Yes (Hospitalization, Other)
  Sender: FDA-Public Use
  Company Number: US-DECIPHERA PHARMACEUTICALS LLC-2024US000190

PATIENT
  Age: 78 Year
  Sex: Female

DRUGS (1)
  1. QINLOCK [Suspect]
     Active Substance: RIPRETINIB
     Indication: Malignant connective tissue neoplasm
     Dosage: 150 MILLIGRAM, QD
     Route: 048
     Dates: start: 20231218, end: 202406

REACTIONS (15)
  - Spinal fracture [Unknown]
  - Fall [Unknown]
  - Liver disorder [Unknown]
  - Device occlusion [Unknown]
  - Syncope [Unknown]
  - Cardiac disorder [Unknown]
  - Brain neoplasm [Unknown]
  - Palpitations [Unknown]
  - Dyspnoea exertional [Unknown]
  - Chest pain [Recovering/Resolving]
  - Pain [Recovering/Resolving]
  - Asthenia [Unknown]
  - Abdominal pain upper [Unknown]
  - Arthralgia [Recovering/Resolving]
  - Product use in unapproved indication [Unknown]

NARRATIVE: CASE EVENT DATE: 20240401
